FAERS Safety Report 21314718 (Version 1)
Quarter: 2022Q3

REPORT INFORMATION
  Report Type: Spontaneous
  Country: US (occurrence: None)
  Receive Date: 20220909
  Receipt Date: 20220909
  Transmission Date: 20221027
  Serious: No
  Sender: FDA-Public Use
  Company Number: US-ARIS GLOBAL-202111-1974

PATIENT
  Sex: Male

DRUGS (13)
  1. OXERVATE [Suspect]
     Active Substance: CENEGERMIN-BKBJ
     Indication: Neurotrophic keratopathy
     Route: 047
  2. RUTIN [Concomitant]
     Active Substance: RUTIN
  3. LUTEIN-ZEAXANTHIN [Concomitant]
  4. FISH OIL [Concomitant]
     Active Substance: FISH OIL
  5. OLEA EUROPAEA LEAF [Concomitant]
     Active Substance: OLEA EUROPAEA LEAF
  6. CURCUMIN [Concomitant]
     Active Substance: CURCUMIN
  7. COENZYME Q10 [Concomitant]
     Active Substance: DIETARY SUPPLEMENT\UBIDECARENONE
  8. GARLIC [Concomitant]
     Active Substance: GARLIC
  9. DIETARY SUPPLEMENT\HERBALS\MILK THISTLE [Concomitant]
     Active Substance: DIETARY SUPPLEMENT\HERBALS\MILK THISTLE
  10. VITAMINS [Concomitant]
     Active Substance: VITAMINS
  11. BLINK TEARS [Concomitant]
     Active Substance: POLYETHYLENE GLYCOL 400
  12. CLONAZEPAM [Concomitant]
     Active Substance: CLONAZEPAM
  13. MIRTAZAPINE [Concomitant]
     Active Substance: MIRTAZAPINE

REACTIONS (4)
  - Eyelid pain [Not Recovered/Not Resolved]
  - Eye pain [Recovered/Resolved]
  - Product use issue [Unknown]
  - Accidental overdose [Unknown]
